FAERS Safety Report 6295704-2 (Version None)
Quarter: 2009Q3

REPORT INFORMATION
  Report Type: 
  Country: None (occurrence: None)
  Receive Date: 20090804
  Receipt Date: 20090728
  Transmission Date: 20100115
  Serious: Yes (Hospitalization)
  Sender: FDA-Public Use
  Company Number: US-CELGENEUS-163-21880-09072042

PATIENT
  Sex: Female

DRUGS (2)
  1. REVLIMID [Suspect]
     Indication: MULTIPLE MYELOMA
     Route: 048
     Dates: start: 20090317
  2. REVLIMID [Suspect]
     Route: 048
     Dates: start: 20090701

REACTIONS (3)
  - DECREASED APPETITE [None]
  - NAUSEA [None]
  - PETECHIAE [None]
